FAERS Safety Report 9400005 (Version 1)
Quarter: 2013Q3

REPORT INFORMATION
  Report Type: Spontaneous
  Country: JP (occurrence: JP)
  Receive Date: 20130715
  Receipt Date: 20130715
  Transmission Date: 20140515
  Serious: Yes (Other)
  Sender: FDA-Public Use
  Company Number: JP-BRACCO-007204

PATIENT
  Sex: 0

DRUGS (1)
  1. IOPAMIRON [Suspect]
     Indication: X-RAY WITH CONTRAST LOWER GASTROINTESTINAL TRACT
     Route: 054

REACTIONS (2)
  - Rectal perforation [Recovering/Resolving]
  - Incorrect route of drug administration [Recovering/Resolving]
